FAERS Safety Report 5504132-6 (Version None)
Quarter: 2007Q4

REPORT INFORMATION
  Report Type: 
  Country: None (occurrence: None)
  Receive Date: 20071101
  Receipt Date: 20071023
  Transmission Date: 20080405
  Serious: Yes (Hospitalization, Other)
  Sender: FDA-Public Use
  Company Number: A0662831A

PATIENT
  Age: 55 Year
  Sex: Female
  Weight: 110.9 kg

DRUGS (14)
  1. AVANDIA [Suspect]
     Dosage: 4MG PER DAY
     Route: 048
     Dates: start: 20031001, end: 20070606
  2. VIOXX [Concomitant]
  3. CELEBREX [Concomitant]
  4. LESCOL [Concomitant]
  5. THEOPHYLLINE [Concomitant]
  6. ALBUTEROL [Concomitant]
  7. SULAR [Concomitant]
  8. HYDROCHLOROTHIAZIDE [Concomitant]
  9. KLOR-CON [Concomitant]
  10. PLAVIX [Concomitant]
  11. DUONEB [Concomitant]
  12. ZYRTEC [Concomitant]
  13. OXYGEN [Concomitant]
  14. HYDROCODONE BITARTRATE [Concomitant]

REACTIONS (21)
  - CARDIAC DISORDER [None]
  - CARDIOMEGALY [None]
  - CEREBROVASCULAR ACCIDENT [None]
  - CHEST PAIN [None]
  - CHRONIC OBSTRUCTIVE PULMONARY DISEASE [None]
  - DYSPNOEA [None]
  - HEADACHE [None]
  - HEART INJURY [None]
  - HYPOAESTHESIA [None]
  - HYPOKALAEMIA [None]
  - LACUNAR INFARCTION [None]
  - LUNG INFILTRATION [None]
  - MUSCULAR WEAKNESS [None]
  - MUSCULOSKELETAL PAIN [None]
  - NECK PAIN [None]
  - PAIN [None]
  - PARAESTHESIA [None]
  - PNEUMONIA [None]
  - PRESYNCOPE [None]
  - STRESS [None]
  - WEIGHT INCREASED [None]
